FAERS Safety Report 14689461 (Version 1)
Quarter: 2018Q1

REPORT INFORMATION
  Report Type: Spontaneous
  Country: DE (occurrence: DE)
  Receive Date: 20180328
  Receipt Date: 20180328
  Transmission Date: 20180509
  Serious: Yes (Congenital Anomaly, Other)
  Sender: FDA-Public Use
  Company Number: DE-DRREDDYS-GER/GER/18/0097075

PATIENT
  Sex: Female
  Weight: 1.26 kg

DRUGS (8)
  1. LAMOTRIGINE. [Suspect]
     Active Substance: LAMOTRIGINE
     Indication: DEPRESSION
     Dosage: 200 (MG/D)
     Route: 064
  2. VALDOXAN [Concomitant]
     Active Substance: AGOMELATINE
     Indication: DEPRESSION
     Dosage: 50 [MG/D ]/ 25-50 MG/D
     Route: 064
     Dates: start: 20161128, end: 20170126
  3. DAS GESUNDE PLUS A-Z MAMA (NEM) [Concomitant]
     Indication: PROPHYLAXIS OF NEURAL TUBE DEFECT
     Route: 064
     Dates: start: 20170101, end: 20170519
  4. OPIPRAMOL [Suspect]
     Active Substance: OPIPRAMOL
     Indication: DEPRESSION
     Dosage: 100 (MG/D)
     Route: 064
  5. METFORMIN [Suspect]
     Active Substance: METFORMIN HYDROCHLORIDE
     Indication: INSULIN RESISTANCE
     Dosage: 2000 (MG/D)/ INITIAL 2000MG/D, DOSAGE REDUCTION TO 1000MG/D FROM GW 19+5
     Route: 064
     Dates: start: 20161128, end: 20170425
  6. NORTRILEN [Suspect]
     Active Substance: NORTRIPTYLINE
     Indication: DEPRESSION
     Dosage: 40 (MG/D)
     Route: 064
  7. LEVOTHYROXINE SODIUM. [Concomitant]
     Active Substance: LEVOTHYROXINE SODIUM
     Indication: AUTOIMMUNE THYROIDITIS
     Dosage: 112 (MICROGRAM/D)
     Route: 064
     Dates: start: 20161128, end: 20170807
  8. METFORMIN [Suspect]
     Active Substance: METFORMIN HYDROCHLORIDE
     Route: 064

REACTIONS (4)
  - Small for dates baby [Recovering/Resolving]
  - Microcephaly [Unknown]
  - Selective eating disorder [Recovered/Resolved]
  - Foetal exposure during pregnancy [Recovered/Resolved]

NARRATIVE: CASE EVENT DATE: 20170807
